FAERS Safety Report 10536762 (Version 1)
Quarter: 2014Q4

REPORT INFORMATION
  Report Type: Spontaneous
  Country: US (occurrence: US)
  Receive Date: 20141022
  Receipt Date: 20141022
  Transmission Date: 20150529
  Serious: No
  Sender: FDA-Public Use
  Company Number: US-RECKITT BENCKISER PHARMACEUTICAL, INC-RB-70081-2014

PATIENT

DRUGS (2)
  1. BUPRENORPHINE GENERIC TAB [Suspect]
     Active Substance: BUPRENORPHINE
     Indication: DRUG DEPENDENCE
     Dosage: UNK
     Route: 060
     Dates: start: 201402
  2. SUBOXONE [Suspect]
     Active Substance: BUPRENORPHINE HYDROCHLORIDE\NALOXONE HYDROCHLORIDE
     Indication: DRUG DEPENDENCE
     Dosage: 8 MG, QID
     Route: 060
     Dates: start: 201401, end: 201402

REACTIONS (7)
  - Nausea [Recovered/Resolved]
  - Substance abuse [Not Recovered/Not Resolved]
  - Extra dose administered [Recovered/Resolved]
  - Anxiety [Not Recovered/Not Resolved]
  - Feeling abnormal [Recovered/Resolved]
  - Activities of daily living impaired [Recovered/Resolved]
  - Fatigue [Not Recovered/Not Resolved]

NARRATIVE: CASE EVENT DATE: 2014
